FAERS Safety Report 6626846-7 (Version None)
Quarter: 2010Q1

REPORT INFORMATION
  Report Type: 
  Country: None (occurrence: None)
  Receive Date: 20100308
  Receipt Date: 20090112
  Transmission Date: 20100710
  Serious: Yes (Life-Threatening, Hospitalization)
  Sender: FDA-Public Use
  Company Number: DSA_33101_2009

PATIENT
  Age: 80 Year
  Sex: Female

DRUGS (12)
  1. ENALAPRIL MALEATE [Suspect]
     Indication: HYPERTENSION
     Dosage: 10 MG BID ORAL
     Route: 048
  2. INSULIN HUMAN INJECTION, ISOPHANE (INJ INSULIN HUMAN) [Suspect]
     Indication: TYPE 2 DIABETES MELLITUS
     Dosage: 64 IU, SUBCUTANEOUS
     Route: 058
     Dates: start: 20080219
  3. ASPIRIN [Concomitant]
  4. CARVEDILOL [Concomitant]
  5. LEVOTHYROXINE SODIUM [Concomitant]
  6. OMEPRAZOLE [Concomitant]
  7. PREDNISOLONE [Concomitant]
  8. RISPERIDONE [Concomitant]
  9. TORSEMIDE [Concomitant]
  10. DIHYDROCODEINE BITARTRATE INJ [Concomitant]
  11. ALBUTEROL [Concomitant]
  12. CALCIUM CARBONATE W/CHOLECALCIFEROL/SODIUM [Concomitant]

REACTIONS (8)
  - BLOOD CREATININE INCREASED [None]
  - BLOOD GLUCOSE INCREASED [None]
  - C-REACTIVE PROTEIN INCREASED [None]
  - DRUG INTERACTION [None]
  - GLYCOSYLATED HAEMOGLOBIN INCREASED [None]
  - HAEMATOCRIT INCREASED [None]
  - HAEMOGLOBIN INCREASED [None]
  - HYPOGLYCAEMIA [None]
